FAERS Safety Report 22092496 (Version 1)
Quarter: 2023Q1

REPORT INFORMATION
  Report Type: Spontaneous
  Country: US (occurrence: None)
  Receive Date: 20230313
  Receipt Date: 20230313
  Transmission Date: 20230418
  Serious: Yes (Hospitalization)
  Sender: FDA-Public Use
  Company Number: None

PATIENT
  Age: 74 Year
  Sex: Male
  Weight: 83.46 kg

DRUGS (21)
  1. CAPECITABINE [Suspect]
     Active Substance: CAPECITABINE
     Indication: Gastric cancer
     Dosage: FREQUENCY : TWICE A DAY;?
     Route: 048
     Dates: start: 202302
  2. ALBUTEROL [Concomitant]
     Active Substance: ALBUTEROL
  3. ATORVASTATIN [Concomitant]
     Active Substance: ATORVASTATIN
  4. AZELASTINE [Concomitant]
     Active Substance: AZELASTINE
  5. VITAMIN B COMPLEX [Concomitant]
     Active Substance: CYANOCOBALAMIN\DEXPANTHENOL\NIACINAMIDE\PYRIDOXINE HYDROCHLORIDE\RIBOFLAVIN 5^-PHOSPHATE SODIUM\THIA
  6. CITRACAL+D3 [Concomitant]
  7. COZAAR [Concomitant]
     Active Substance: LOSARTAN POTASSIUM
  8. FOLIC ACID [Concomitant]
     Active Substance: FOLIC ACID
  9. DICLOFENAC [Concomitant]
     Active Substance: DICLOFENAC
  10. FLOMAX [Concomitant]
     Active Substance: TAMSULOSIN HYDROCHLORIDE
  11. FLUOCINOLONE [Concomitant]
     Active Substance: FLUOCINOLONE
  12. FUROSEMIDE [Concomitant]
     Active Substance: FUROSEMIDE
  13. GABAPENTIN [Concomitant]
     Active Substance: GABAPENTIN
  14. LACTOBACILLUS ACIDOPHILUS [Concomitant]
     Active Substance: LACTOBACILLUS ACIDOPHILUS
  15. LOMOTIL [Concomitant]
  16. NEXIUM [Concomitant]
     Active Substance: ESOMEPRAZOLE MAGNESIUM
  17. OXALIPLATIN [Concomitant]
     Active Substance: OXALIPLATIN
  18. TRADJENTA [Concomitant]
     Active Substance: LINAGLIPTIN
  19. TYLENOL [Concomitant]
     Active Substance: ACETAMINOPHEN
  20. VITAMIN D [Concomitant]
     Active Substance: VITAMIN D NOS
  21. ZETIA [Concomitant]
     Active Substance: EZETIMIBE

REACTIONS (1)
  - Gastrointestinal haemorrhage [None]
